FAERS Safety Report 8760713 (Version 1)
Quarter: 2012Q4

REPORT INFORMATION
  Report Type: 
  Country: AU (occurrence: AU)
  Receive Date: 20120830
  Receipt Date: 20120830
  Transmission Date: 20130627
  Serious: Yes (Hospitalization, Other)
  Sender: FDA-Public Use
  Company Number: AU-BRISTOL-MYERS SQUIBB COMPANY-16880486

PATIENT
  Age: 82 Year
  Sex: Female
  Weight: 57 kg

DRUGS (7)
  1. ORENCIA [Suspect]
     Indication: RHEUMATOID ARTHRITIS
     Route: 042
     Dates: start: 20110602
  2. METHOTREXATE [Concomitant]
     Route: 048
  3. FOLIC ACID [Concomitant]
     Route: 048
  4. VENTOLIN [Concomitant]
     Route: 055
  5. SPIRIVA [Concomitant]
     Dosage: Spiriva Nocte
     Route: 055
  6. PREDNISONE [Concomitant]
     Route: 048
  7. FLIXOTIDE [Concomitant]
     Route: 055

REACTIONS (1)
  - Cerebrovascular accident [Unknown]
